FAERS Safety Report 13805874 (Version 7)
Quarter: 2018Q2

REPORT INFORMATION
  Report Type: Report from Study
  Country: ZA (occurrence: ZA)
  Receive Date: 20170728
  Receipt Date: 20180511
  Transmission Date: 20180711
  Serious: Yes (Hospitalization, Other)
  Sender: FDA-Public Use
  Company Number: ZA-BRISTOL-MYERS SQUIBB COMPANY-BMS-2017-035011

PATIENT
  Sex: Female

DRUGS (1)
  1. ABATACEPT [Suspect]
     Active Substance: ABATACEPT
     Indication: RHEUMATOID ARTHRITIS
     Dosage: 125 MG, QWK
     Route: 058
     Dates: start: 20170323, end: 20171031

REACTIONS (10)
  - Pain [Not Recovered/Not Resolved]
  - Musculoskeletal stiffness [Not Recovered/Not Resolved]
  - Fungal infection [Unknown]
  - Drug ineffective [Unknown]
  - Arthralgia [Recovered/Resolved]
  - Pain in extremity [Unknown]
  - Back pain [Unknown]
  - Nerve compression [Unknown]
  - Rash [Not Recovered/Not Resolved]
  - Arthropathy [Recovered/Resolved]
